FAERS Safety Report 10562899 (Version 1)
Quarter: 2014Q4

REPORT INFORMATION
  Report Type: Spontaneous
  Country: US (occurrence: US)
  Receive Date: 20141104
  Receipt Date: 20141104
  Transmission Date: 20150529
  Serious: No
  Sender: FDA-Public Use
  Company Number: US-ABBVIE-13P-163-1167342-00

PATIENT
  Sex: Female
  Weight: 40.86 kg

DRUGS (5)
  1. NYSTATIN. [Concomitant]
     Active Substance: NYSTATIN
     Indication: FUNGAL INFECTION
     Route: 048
  2. BIAXIN [Suspect]
     Active Substance: CLARITHROMYCIN
     Indication: LYME DISEASE
     Route: 048
     Dates: start: 2009, end: 2009
  3. FLUCONAZOLE. [Concomitant]
     Active Substance: FLUCONAZOLE
     Indication: FUNGAL INFECTION
     Route: 048
  4. MEPRON [Concomitant]
     Active Substance: ATOVAQUONE
     Indication: LYME DISEASE
     Route: 048
  5. CHEMET [Concomitant]
     Active Substance: SUCCIMER
     Indication: UNEVALUABLE EVENT
     Route: 048

REACTIONS (5)
  - Drug intolerance [Unknown]
  - Dyspepsia [Recovered/Resolved]
  - Abdominal pain [Recovered/Resolved]
  - Dysgeusia [Recovered/Resolved]
  - Abdominal pain upper [Recovered/Resolved]

NARRATIVE: CASE EVENT DATE: 2009
